FAERS Safety Report 4999446-2 (Version None)
Quarter: 2006Q2

REPORT INFORMATION
  Report Type: 
  Country: None (occurrence: None)
  Receive Date: 20060509
  Receipt Date: 20060509
  Transmission Date: 20061013
  Serious: Yes (Hospitalization)
  Sender: FDA-Public Use
  Company Number: None

PATIENT
  Age: 26 Year
  Sex: Male
  Weight: 53 kg

DRUGS (1)
  1. CEFTAZIDIME [Suspect]
     Indication: URINARY TRACT INFECTION
     Dosage: 500MG  IV Q 12HOURS
     Route: 042
     Dates: start: 20051001, end: 20051003

REACTIONS (2)
  - CHEST DISCOMFORT [None]
  - THROAT TIGHTNESS [None]
